FAERS Safety Report 21440068 (Version 1)
Quarter: 2022Q4

REPORT INFORMATION
  Report Type: Spontaneous
  Country: IN (occurrence: IN)
  Receive Date: 20221011
  Receipt Date: 20221011
  Transmission Date: 20230113
  Serious: Yes (Death, Other)
  Sender: FDA-Public Use
  Company Number: IN-drreddys-LIT/IND/22/0155637

PATIENT
  Age: 52 Year
  Sex: Female

DRUGS (2)
  1. AZACITIDINE [Suspect]
     Active Substance: AZACITIDINE
     Indication: Acute myeloid leukaemia
     Dosage: 75 MG /M2 FOR 7 DAYS
  2. VENETOCLAX [Suspect]
     Active Substance: VENETOCLAX
     Indication: Acute myeloid leukaemia
     Dosage: 100 MG/DAY FOR 14 DAYS

REACTIONS (2)
  - Pneumocystis jirovecii pneumonia [Fatal]
  - Neutropenia [Unknown]
